FAERS Safety Report 5225740-6 (Version None)
Quarter: 2007Q1

REPORT INFORMATION
  Report Type: 
  Country: None (occurrence: None)
  Receive Date: 20070131
  Receipt Date: 20070131
  Transmission Date: 20070707
  Serious: No
  Sender: FDA-Public Use
  Company Number: None

PATIENT
  Sex: Male
  Weight: 113.9 kg

DRUGS (3)
  1. HEPARIN [Suspect]
     Indication: ATRIAL FIBRILLATION
     Dosage: PER PROTOCOL IV
     Route: 042
     Dates: start: 20070101, end: 20070107
  2. WARFARIN SODIUM [Suspect]
     Indication: ATRIAL FIBRILLATION
     Dosage: 5MG OR 7.5 MG ONCE DAILY BY MOUTH
     Route: 048
     Dates: start: 20070104, end: 20070106
  3. WARFARIN SODIUM [Suspect]
     Indication: ATRIAL FIBRILLATION
     Dosage: 5MG OR 7.5 MG ONCE DAILY BY MOUTH
     Route: 048
     Dates: start: 20070107

REACTIONS (1)
  - CEREBRAL HAEMORRHAGE [None]
